FAERS Safety Report 8974820 (Version 1)
Quarter: 2012Q4

REPORT INFORMATION
  Report Type: 
  Country: IN (occurrence: IN)
  Receive Date: 20121219
  Receipt Date: 20121219
  Transmission Date: 20130627
  Serious: Yes (Hospitalization)
  Sender: FDA-Public Use
  Company Number: IN-MYLANLABS-2012S1025421

PATIENT
  Age: 40 Year
  Sex: Female

DRUGS (3)
  1. STAVUDINE [Suspect]
     Indication: HIV TEST POSITIVE
     Dosage: 30mg
     Route: 065
  2. LAMIVUDINE [Suspect]
     Indication: HIV TEST POSITIVE
     Route: 065
  3. NEVIRAPINE [Suspect]
     Indication: HIV TEST POSITIVE
     Route: 065

REACTIONS (1)
  - Lactic acidosis [Unknown]
